FAERS Safety Report 15169049 (Version 4)
Quarter: 2018Q3

REPORT INFORMATION
  Report Type: Report from Study
  Country: US (occurrence: US)
  Receive Date: 20180720
  Receipt Date: 20180802
  Transmission Date: 20181010
  Serious: Yes (Other)
  Sender: FDA-Public Use
  Company Number: US-ROCHE-2154092

PATIENT
  Age: 77 Year
  Sex: Female
  Weight: 115.77 kg

DRUGS (3)
  1. ESBRIET [Suspect]
     Active Substance: PIRFENIDONE
     Dosage: 1 PILL WITH MEALS 3 TIMES PER DAY ;ONGOING: NO
     Route: 048
     Dates: start: 20180712, end: 20180713
  2. OTEZLA [Concomitant]
     Active Substance: APREMILAST
     Dosage: ONGOING NO
     Route: 048
     Dates: end: 20180708
  3. ESBRIET [Suspect]
     Active Substance: PIRFENIDONE
     Indication: IDIOPATHIC PULMONARY FIBROSIS
     Route: 048
     Dates: start: 201705

REACTIONS (12)
  - Burns third degree [Unknown]
  - Nausea [Unknown]
  - Rash generalised [Unknown]
  - Blister [Unknown]
  - Erythema [Not Recovered/Not Resolved]
  - Pruritus [Not Recovered/Not Resolved]
  - Skin exfoliation [Unknown]
  - Sunburn [Unknown]
  - Abdominal pain upper [Unknown]
  - Skin disorder [Unknown]
  - Ill-defined disorder [Recovered/Resolved]
  - Skin reaction [Unknown]

NARRATIVE: CASE EVENT DATE: 20180712
